FAERS Safety Report 23297590 (Version 3)
Quarter: 2025Q4

REPORT INFORMATION
  Report Type: Spontaneous
  Country: EU (occurrence: EU)
  Receive Date: 20231214
  Receipt Date: 20251015
  Transmission Date: 20260117
  Serious: Yes (Death, Other)
  Sender: AMGEN
  Company Number: None

PATIENT
  Age: 49 Year
  Sex: Male
  Weight: 69 kg

DRUGS (2)
  1. BLINATUMOMAB [Suspect]
     Active Substance: BLINATUMOMAB
     Indication: Product used for unknown indication
     Dosage: UNK
     Route: 040
     Dates: start: 2021
  2. BLINATUMOMAB [Suspect]
     Active Substance: BLINATUMOMAB
     Dosage: 9 MICROGRAM, QD (CUMULATIVE DOSE: 18 MICROGRAM)
     Route: 040
     Dates: start: 20231011, end: 20231013

REACTIONS (8)
  - Transplantation complication [Fatal]
  - Tumour lysis syndrome [Fatal]
  - Drug-induced liver injury [Recovering/Resolving]
  - Disease recurrence [Unknown]
  - Disseminated intravascular coagulation [Recovered/Resolved]
  - Haemophagocytic lymphohistiocytosis [Recovering/Resolving]
  - Immune effector cell-associated neurotoxicity syndrome [Recovered/Resolved]
  - Cytokine release syndrome [Unknown]

NARRATIVE: CASE EVENT DATE: 20231012
